FAERS Safety Report 18329701 (Version 1)
Quarter: 2020Q3

REPORT INFORMATION
  Report Type: Spontaneous
  Country: US (occurrence: US)
  Receive Date: 20200930
  Receipt Date: 20200930
  Transmission Date: 20201103
  Serious: Yes (Other)
  Sender: FDA-Public Use
  Company Number: None

PATIENT
  Age: 36 Year
  Sex: Male
  Weight: 60.3 kg

DRUGS (2)
  1. EPCLUSA [Suspect]
     Active Substance: SOFOSBUVIR\VELPATASVIR
     Indication: HEPATITIS C
     Route: 048
     Dates: start: 20200902, end: 20200928
  2. EPCLUSA [Concomitant]
     Active Substance: SOFOSBUVIR\VELPATASVIR
     Dates: start: 20200902, end: 20200928

REACTIONS (13)
  - Hepatitis C RNA increased [None]
  - Abnormal dreams [None]
  - Feeling of despair [None]
  - Malaise [None]
  - Amnesia [None]
  - Nightmare [None]
  - Decreased appetite [None]
  - Sleep terror [None]
  - Nausea [None]
  - Disorientation [None]
  - Poor quality sleep [None]
  - Depression [None]
  - Abdominal pain [None]

NARRATIVE: CASE EVENT DATE: 20200916
